FAERS Safety Report 12901810 (Version 2)
Quarter: 2017Q1

REPORT INFORMATION
  Report Type: Report from Study
  Country: FR (occurrence: FR)
  Receive Date: 20161102
  Receipt Date: 20170314
  Transmission Date: 20170428
  Serious: Yes (Other)
  Sender: FDA-Public Use
  Company Number: FR-ROCHE-1549432

PATIENT
  Sex: Female

DRUGS (7)
  1. RANIBIZUMAB [Suspect]
     Active Substance: RANIBIZUMAB
     Indication: DIABETIC RETINAL OEDEMA
     Dosage: BOTH EYES
     Route: 050
     Dates: start: 20140827
  2. RANIBIZUMAB [Suspect]
     Active Substance: RANIBIZUMAB
     Indication: VISUAL IMPAIRMENT
     Dosage: BOTH EYES
     Route: 050
     Dates: start: 20140923
  3. ATORVASTATIN [Concomitant]
     Active Substance: ATORVASTATIN
     Indication: HYPERTENSION
     Route: 065
  4. PRAZOSINE [Concomitant]
     Indication: HYPERTENSION
     Route: 065
  5. ALPRESS [Concomitant]
     Active Substance: PRAZOSIN
     Indication: HYPERTENSION
  6. RANIBIZUMAB [Suspect]
     Active Substance: RANIBIZUMAB
     Dosage: BOTH EYES
     Route: 050
     Dates: start: 20141021, end: 20141021
  7. KARDEGIC [Concomitant]
     Active Substance: ASPIRIN LYSINE
     Indication: BLOOD DISORDER
     Route: 065

REACTIONS (1)
  - Hypertensive crisis [Recovered/Resolved]
